FAERS Safety Report 7685121-2 (Version None)
Quarter: 2011Q3

REPORT INFORMATION
  Report Type: 
  Country: None (occurrence: None)
  Receive Date: 20110816
  Receipt Date: 20110805
  Transmission Date: 20111222
  Serious: Yes (Other)
  Sender: FDA-Public Use
  Company Number: US-BRISTOL-MYERS SQUIBB COMPANY-15907827

PATIENT
  Age: 61 Year
  Sex: Female
  Weight: 82 kg

DRUGS (2)
  1. KOMBIGLYZE XR [Suspect]
     Dosage: 1 DF: 2.5/1000 MG
     Dates: start: 20110201
  2. ONGLYZA [Suspect]
     Indication: DIABETES MELLITUS INADEQUATE CONTROL
     Dosage: 1 TABS:2.5/1000MG,FORMULATION:ONGLYZA TABS 5MG QD
     Route: 048
     Dates: start: 20101230, end: 20110601

REACTIONS (3)
  - BLOOD GLUCOSE INCREASED [None]
  - MEDICATION RESIDUE [None]
  - HIATUS HERNIA [None]
